FAERS Safety Report 8686492 (Version 4)
Quarter: 2013Q2

REPORT INFORMATION
  Report Type: Spontaneous
  Country: US (occurrence: US)
  Receive Date: 20120726
  Receipt Date: 20130524
  Transmission Date: 20140414
  Serious: Yes (Other)
  Sender: FDA-Public Use
  Company Number: US-ASTRAZENECA-2010SE30740

PATIENT
  Age: 63 Year
  Sex: Female
  Weight: 68.9 kg

DRUGS (30)
  1. SEROQUEL [Suspect]
     Indication: SLEEP DISORDER
     Route: 048
     Dates: start: 201001, end: 201004
  2. SEROQUEL [Suspect]
     Indication: BIPOLAR DISORDER
     Route: 048
     Dates: start: 201001, end: 201004
  3. SEROQUEL [Suspect]
     Indication: SLEEP DISORDER
     Route: 048
  4. SEROQUEL [Suspect]
     Indication: BIPOLAR DISORDER
     Route: 048
  5. SEROQUEL [Suspect]
     Indication: SLEEP DISORDER
     Dosage: TAKES TWO TABLETS OF SEROQUEL
     Route: 048
  6. SEROQUEL [Suspect]
     Indication: BIPOLAR DISORDER
     Dosage: TAKES TWO TABLETS OF SEROQUEL
     Route: 048
  7. SEROQUEL [Suspect]
     Indication: SLEEP DISORDER
     Route: 048
  8. SEROQUEL [Suspect]
     Indication: BIPOLAR DISORDER
     Route: 048
  9. SEROQUEL [Suspect]
     Indication: SLEEP DISORDER
     Route: 048
  10. SEROQUEL [Suspect]
     Indication: BIPOLAR DISORDER
     Route: 048
  11. SEROQUEL [Suspect]
     Indication: SLEEP DISORDER
     Route: 048
  12. SEROQUEL [Suspect]
     Indication: BIPOLAR DISORDER
     Route: 048
  13. SEROQUEL [Suspect]
     Indication: SLEEP DISORDER
     Route: 048
  14. SEROQUEL [Suspect]
     Indication: BIPOLAR DISORDER
     Route: 048
  15. KLONOPIN [Suspect]
     Route: 048
     Dates: start: 201001, end: 201004
  16. TYLENOL CODIENE [Suspect]
     Route: 048
     Dates: start: 201001, end: 201004
  17. PROZAC [Suspect]
     Route: 048
     Dates: start: 201001, end: 201004
  18. REQUIP [Suspect]
     Route: 048
     Dates: start: 201001, end: 201004
  19. REQUIP [Suspect]
     Route: 048
  20. GREEN TEA LEAF [Suspect]
     Indication: WEIGHT DECREASED
     Route: 065
  21. UNSPECIFIED SEIZURE MEDICATIONS [Suspect]
     Indication: CONVULSION
     Route: 065
  22. BUPROPION HCL [Concomitant]
     Route: 048
  23. LORATADINE [Concomitant]
     Route: 048
  24. FUROSEMIDE [Concomitant]
     Indication: OEDEMA PERIPHERAL
     Route: 048
  25. FUROSEMIDE [Concomitant]
     Indication: OEDEMA PERIPHERAL
     Dosage: 20 MG, DAILY, AS REQUIRED
     Route: 048
  26. DIVALPROEX SODIUM [Concomitant]
     Route: 048
  27. DIVALPROEX SODIUM [Concomitant]
     Route: 048
  28. EXCEDRIN MIGRAINE [Concomitant]
     Route: 048
  29. SUMATRIPTAN SUCCINATE [Concomitant]
     Indication: MIGRAINE
     Dosage: TAKE 1 TABLET. MAY REPEAT 2 HOURS LATER. MAXIMUM 200 MG/DAY
     Route: 048
  30. ROPINIROLE HCL [Concomitant]
     Route: 048

REACTIONS (19)
  - Grand mal convulsion [Unknown]
  - Cognitive disorder [Unknown]
  - Oedema [Unknown]
  - Feeling abnormal [Recovered/Resolved]
  - Insomnia [Unknown]
  - Malaise [Unknown]
  - Panic attack [Unknown]
  - Paranoia [Unknown]
  - Schizophrenia [Unknown]
  - Activities of daily living impaired [Unknown]
  - Impaired work ability [Recovered/Resolved]
  - Withdrawal syndrome [Unknown]
  - Feeling abnormal [Recovered/Resolved]
  - Tremor [Unknown]
  - Bipolar disorder [Unknown]
  - Nervousness [Recovered/Resolved]
  - Intentional drug misuse [Unknown]
  - Drug dose omission [Unknown]
  - Drug ineffective [Unknown]
